FAERS Safety Report 6424169-2 (Version None)
Quarter: 2009Q4

REPORT INFORMATION
  Report Type: 
  Country: None (occurrence: None)
  Receive Date: 20091029
  Receipt Date: 20091019
  Transmission Date: 20100525
  Serious: Yes (Hospitalization)
  Sender: FDA-Public Use
  Company Number: 2009011662

PATIENT
  Age: 60 Year
  Sex: Female

DRUGS (1)
  1. ACTIQ [Suspect]
     Dosage: 600 MCG (200 MCG, 3 IN 1 D), BU
     Route: 002

REACTIONS (1)
  - SYNCOPE [None]
